FAERS Safety Report 8490081-0 (Version None)
Quarter: 2012Q3

REPORT INFORMATION
  Report Type: 
  Country: None (occurrence: None)
  Receive Date: 20120705
  Receipt Date: 20120625
  Transmission Date: 20120928
  Serious: Yes (Other)
  Sender: FDA-Public Use
  Company Number: US-ASTRAZENECA-2012SE42960

PATIENT
  Age: 80 Year
  Sex: Female

DRUGS (2)
  1. COUMADIN [Concomitant]
  2. BRILINTA [Suspect]
     Route: 048

REACTIONS (2)
  - COAGULOPATHY [None]
  - THROMBOSIS IN DEVICE [None]
